FAERS Safety Report 8058105-2 (Version None)
Quarter: 2012Q1

REPORT INFORMATION
  Report Type: 
  Country: None (occurrence: None)
  Receive Date: 20120113
  Receipt Date: 20120105
  Transmission Date: 20120608
  Serious: No
  Sender: FDA-Public Use
  Company Number: ACO_25986_2011

PATIENT
  Age: 62 Year
  Sex: Male

DRUGS (17)
  1. BACLOFEN [Concomitant]
  2. CRESTOR [Concomitant]
  3. CYCLOBENZAPRINE [Concomitant]
  4. AVONEX [Concomitant]
  5. DIFLUNISAL [Concomitant]
  6. INDAPAMIDE [Concomitant]
  7. ASPIRIN [Concomitant]
  8. AMANTADINE HCL [Concomitant]
  9. COVERSYL /00790702/(PERINDOPRIL ERBUMINE) [Concomitant]
  10. METFORMIN HCL [Concomitant]
  11. EXTRA STRENGTH TYLENOL [Concomitant]
  12. LOVENOX [Concomitant]
  13. FAMPRIDINE-SR (FAMPRIDINE) TABLET [Suspect]
     Indication: MULTIPLE SCLEROSIS
     Dosage: 10 MG, BID, ORAL
     Route: 048
     Dates: start: 20060822
  14. PLAVIX [Concomitant]
  15. DITROPAN XL [Concomitant]
  16. HUMULIN N [Concomitant]
  17. DILTIAZEM [Concomitant]

REACTIONS (6)
  - ANGINA UNSTABLE [None]
  - ARTERIOSCLEROSIS CORONARY ARTERY [None]
  - LEFT VENTRICULAR HYPERTROPHY [None]
  - FATIGUE [None]
  - CORONARY ARTERY RESTENOSIS [None]
  - AORTIC BRUIT [None]
